FAERS Safety Report 15924625 (Version 1)
Quarter: 2019Q1

REPORT INFORMATION
  Report Type: Report from Study
  Country: CN (occurrence: CN)
  Receive Date: 20190206
  Receipt Date: 20190206
  Transmission Date: 20190417
  Serious: Yes (Other)
  Sender: FDA-Public Use
  Company Number: CN-ROCHE-2257204

PATIENT

DRUGS (3)
  1. CAPECITABINE. [Suspect]
     Active Substance: CAPECITABINE
     Indication: RECTAL CANCER
     Dosage: DAYS 1-1522-36,43-57
     Route: 048
  2. OXALIPLATIN. [Suspect]
     Active Substance: OXALIPLATIN
     Indication: RECTAL CANCER
     Dosage: DAY 1, 2, 43
     Route: 042
  3. BEVACIZUMAB. [Suspect]
     Active Substance: BEVACIZUMAB
     Indication: RECTAL CANCER
     Dosage: DAY 1, 22, 43
     Route: 042

REACTIONS (6)
  - Leukopenia [Unknown]
  - Neutropenia [Unknown]
  - Dehydration [Unknown]
  - Diarrhoea [Unknown]
  - Radiation skin injury [Unknown]
  - Mucosal inflammation [Unknown]
